FAERS Safety Report 24036883 (Version 5)
Quarter: 2025Q3

REPORT INFORMATION
  Report Type: Other
  Country: US (occurrence: US)
  Receive Date: 20240701
  Receipt Date: 20250918
  Transmission Date: 20251020
  Serious: Yes (Other)
  Sender: TRAVERE THERAPEUTICS
  Company Number: US-TRAVERE-2024TVT00624

PATIENT
  Age: 55 Year
  Sex: Male

DRUGS (4)
  1. FILSPARI [Suspect]
     Active Substance: SPARSENTAN
     Indication: IgA nephropathy
     Route: 048
     Dates: start: 202405
  2. FILSPARI [Suspect]
     Active Substance: SPARSENTAN
     Indication: Haematuria
     Route: 048
     Dates: start: 20240614, end: 20240618
  3. FILSPARI [Suspect]
     Active Substance: SPARSENTAN
     Route: 048
  4. LISINOPRIL [Concomitant]
     Active Substance: LISINOPRIL

REACTIONS (12)
  - Loss of consciousness [Recovered/Resolved]
  - Pyrexia [Unknown]
  - Illness [Recovered/Resolved]
  - Cough [Unknown]
  - Dyspepsia [Unknown]
  - Sleep disorder [Unknown]
  - Decreased appetite [Unknown]
  - Hypotension [Recovering/Resolving]
  - Malaise [Unknown]
  - Fatigue [Recovering/Resolving]
  - Dehydration [Recovered/Resolved]
  - Weight decreased [Unknown]

NARRATIVE: CASE EVENT DATE: 20240617
